FAERS Safety Report 24761527 (Version 1)
Quarter: 2024Q4

REPORT INFORMATION
  Report Type: Spontaneous
  Country: MA (occurrence: MA)
  Receive Date: 20241220
  Receipt Date: 20241220
  Transmission Date: 20250115
  Serious: Yes (Hospitalization, Other)
  Sender: INSUD PHARMA
  Company Number: MA-INSUD PHARMA-2412MA09703

PATIENT

DRUGS (2)
  1. TESTOSTERONE [Suspect]
     Active Substance: TESTOSTERONE
     Indication: Muscle building therapy
     Dosage: 250 MILLIGRAM TWICE A WEEK
     Route: 030
  2. STANOZOLOL [Suspect]
     Active Substance: STANOZOLOL
     Indication: Muscle building therapy
     Dosage: 10 MILLIGRAM, QD
     Route: 048

REACTIONS (4)
  - Atrial fibrillation [Recovered/Resolved]
  - Drug abuse [Recovered/Resolved]
  - Dyspnoea [Recovered/Resolved]
  - Palpitations [Recovered/Resolved]
